FAERS Safety Report 22225109 (Version 1)
Quarter: 2023Q2

REPORT INFORMATION
  Report Type: Spontaneous
  Country: AR (occurrence: AR)
  Receive Date: 20230418
  Receipt Date: 20230418
  Transmission Date: 20230721
  Serious: Yes (Death, Other)
  Sender: FDA-Public Use
  Company Number: AR-PFIZER INC-PV202300068131

PATIENT
  Age: 75 Year
  Sex: Male

DRUGS (1)
  1. ENBREL [Suspect]
     Active Substance: ETANERCEPT
     Indication: Ankylosing spondylitis
     Dosage: 25 MG, WEEKLY
     Route: 065
     Dates: start: 20050329

REACTIONS (2)
  - Death [Fatal]
  - Off label use [Fatal]

NARRATIVE: CASE EVENT DATE: 20050329
